FAERS Safety Report 21726036 (Version 1)
Quarter: 2022Q4

REPORT INFORMATION
  Report Type: Spontaneous
  Country: US (occurrence: US)
  Receive Date: 20221214
  Receipt Date: 20221214
  Transmission Date: 20230113
  Serious: No
  Sender: FDA-Public Use
  Company Number: US-LEO Pharma-342066

PATIENT
  Sex: Female

DRUGS (1)
  1. ADBRY [Suspect]
     Active Substance: TRALOKINUMAB-LDRM
     Indication: Dermatitis atopic
     Dosage: LAST DOSE WAS TAKEN ON 31-MAY, INITIAL DOSE WAS NOT REPORTED THEN AT 300 MG EVERY TWO WEEKS
     Route: 058
     Dates: start: 20220402

REACTIONS (17)
  - Cough [Unknown]
  - Pruritus [Not Recovered/Not Resolved]
  - Fatigue [Unknown]
  - Fatigue [Unknown]
  - Blood pressure abnormal [Unknown]
  - Paraesthesia [Unknown]
  - Pruritus [Unknown]
  - Feeling abnormal [Unknown]
  - Oropharyngeal pain [Recovering/Resolving]
  - Dry eye [Unknown]
  - Eye irritation [Unknown]
  - Dry skin [Unknown]
  - Erythema [Unknown]
  - Nasopharyngitis [Recovering/Resolving]
  - Chest discomfort [Unknown]
  - Chest discomfort [Unknown]
  - Contusion [Unknown]
